FAERS Safety Report 11270792 (Version 1)
Quarter: 2015Q3

REPORT INFORMATION
  Report Type: Spontaneous
  Country: CN (occurrence: CN)
  Receive Date: 20150714
  Receipt Date: 20150714
  Transmission Date: 20151125
  Serious: Yes (Other)
  Sender: FDA-Public Use
  Company Number: CN-PFIZER INC-2015225965

PATIENT
  Age: 75 Year
  Sex: Female
  Weight: 70 kg

DRUGS (4)
  1. AMBROXOL HYDROCHLORIDE [Concomitant]
     Active Substance: AMBROXOL HYDROCHLORIDE
     Indication: SPUTUM ABNORMAL
     Dosage: 0.09 G, 3X/DAY
     Route: 042
     Dates: start: 20150114, end: 20150123
  2. VFEND [Suspect]
     Active Substance: VORICONAZOLE
     Indication: PNEUMONIA
     Dosage: 200 MG, 2X/DAY
     Route: 042
     Dates: start: 20150115, end: 20150122
  3. SULPERAZON [Suspect]
     Active Substance: CEFOPERAZONE SODIUM\SULBACTAM SODIUM
     Indication: PNEUMONIA BACTERIAL
     Dosage: 6 G, 2X/DAY
     Route: 042
     Dates: start: 20150114, end: 20150122
  4. TYGACIL [Suspect]
     Active Substance: TIGECYCLINE
     Indication: PNEUMONIA BACTERIAL
     Dosage: 100 MG, 2X/DAY
     Route: 042
     Dates: start: 20150114, end: 20150126

REACTIONS (1)
  - Platelet count decreased [Recovering/Resolving]

NARRATIVE: CASE EVENT DATE: 20150114
